FAERS Safety Report 14614473 (Version 1)
Quarter: 2018Q1

REPORT INFORMATION
  Report Type: Spontaneous
  Country: US (occurrence: US)
  Receive Date: 20180308
  Receipt Date: 20180308
  Transmission Date: 20180509
  Serious: Yes (Death, Hospitalization)
  Sender: FDA-Public Use
  Company Number: None

PATIENT
  Age: 43 Year
  Sex: Female
  Weight: 110.25 kg

DRUGS (5)
  1. FLUOXETINE [Concomitant]
     Active Substance: FLUOXETINE HYDROCHLORIDE
     Dates: start: 20170920, end: 20180103
  2. TIZANIDINE. [Concomitant]
     Active Substance: TIZANIDINE
     Dates: start: 20180214, end: 20180225
  3. ELINEST [Suspect]
     Active Substance: ETHINYL ESTRADIOL\NORGESTREL
     Indication: ORAL CONTRACEPTION
     Route: 048
     Dates: start: 20180105, end: 20180224
  4. HYDROCODONE/APAP 5/325 [Concomitant]
     Active Substance: ACETAMINOPHEN\HYDROCODONE
     Dates: start: 20180102, end: 20180225
  5. SERTRALINE [Concomitant]
     Active Substance: SERTRALINE HYDROCHLORIDE
     Dates: start: 20180103, end: 20180225

REACTIONS (7)
  - Loss of consciousness [None]
  - Palpitations [None]
  - Dyspnoea [None]
  - Pulmonary embolism [None]
  - Peripheral swelling [None]
  - Pulse absent [None]
  - Pulmonary thrombosis [None]

NARRATIVE: CASE EVENT DATE: 20180224
